FAERS Safety Report 14265858 (Version 6)
Quarter: 2018Q4

REPORT INFORMATION
  Report Type: Spontaneous
  Country: GB (occurrence: GB)
  Receive Date: 20171209
  Receipt Date: 20181129
  Transmission Date: 20190204
  Serious: Yes (Other)
  Sender: FDA-Public Use
  Company Number: GB-AUROBINDO-AUR-APL-2017-44026

PATIENT
  Age: 43 Year
  Sex: Male

DRUGS (11)
  1. LIPEGFILGRASTIM [Suspect]
     Active Substance: LIPEGFILGRASTIM
     Indication: PRODUCT USED FOR UNKNOWN INDICATION
     Dosage: FOUR CYCLES PLANNED OF 21 DAYS EACH; ADMINISTERED ON DAY 6 OF EACH CYCLE (SINGLE DOSE) ; CYCLICAL...
     Route: 065
     Dates: start: 201708
  2. DEXAMETHASONE. [Suspect]
     Active Substance: DEXAMETHASONE
     Indication: NAUSEA
     Dosage: FOUR CYCLES PLANNED OF 21 DAYS EACH; ADMINISTERED ON DAYS 1-5 OF EACH CYCLE
     Route: 065
     Dates: start: 20170815
  3. ETOPOSIDE. [Suspect]
     Active Substance: ETOPOSIDE
     Indication: SEMINOMA
     Dosage: FOUR CYCLES PLANNED OF 21 DAYS EACH; ADMINISTERED ON DAYS 1-5 OF EACH CYCLE () ; CYCLICAL
     Route: 065
     Dates: start: 20170815
  4. ONDANSETRON 2 MG/ML SOLUTION FOR INJECTION OR INFUSION [Suspect]
     Active Substance: ONDANSETRON
     Indication: NAUSEA
     Dosage: FOUR CYCLES PLANNED OF 21 DAYS EACH; ADMINISTERED ON DAYS 1-5 OF EACH CYCLE ; CYCLICAL
     Route: 065
     Dates: start: 20170815
  5. DEXAMETHASONE. [Suspect]
     Active Substance: DEXAMETHASONE
     Dosage: FOUR CYCLES PLANNED OF 21 DAYS EACH; ADMINISTERED ON DAYS 6-8 OF EACH CYCLE () ; CYCLICAL
     Route: 065
     Dates: start: 20170801
  6. CISPLATIN. [Suspect]
     Active Substance: CISPLATIN
     Indication: TESTICULAR GERM CELL CANCER METASTATIC
  7. CISPLATIN. [Suspect]
     Active Substance: CISPLATIN
     Indication: SEMINOMA
     Dosage: FOUR CYCLES PLANNED OF 21 DAYS EACH; ADMINISTERED ON DAYS 1-5 OF EACH CYCLE () ; CYCLICAL
     Route: 065
     Dates: start: 20170815
  8. ETOPOSIDE. [Suspect]
     Active Substance: ETOPOSIDE
     Indication: TESTICULAR GERM CELL CANCER METASTATIC
  9. LIPEGFILGRASTIM [Suspect]
     Active Substance: LIPEGFILGRASTIM
     Dosage: FOUR CYCLES PLANNED OF 21 DAYS EACH; ADMINISTERED ON DAY 6 OF EACH CYCLE (SINGLE DOSE) () ; CYCLI...
     Route: 065
     Dates: start: 20170820
  10. ZAPONEX [Suspect]
     Active Substance: CLOZAPINE
     Indication: SCHIZOPHRENIA
     Dosage: UNK
     Route: 048
     Dates: start: 20151103
  11. EMEND [Suspect]
     Active Substance: APREPITANT
     Indication: NAUSEA
     Dosage: FOUR CYCLES PLANNED OF 21 DAYS EACH; ADMINISTERED ON DAYS 1-3 OF EACH CYCLE ; CYCLICAL
     Route: 065
     Dates: start: 20170815

REACTIONS (9)
  - Leukopenia [Recovered/Resolved]
  - Neutrophil count decreased [Recovered/Resolved]
  - Contraindicated product administered [Not Recovered/Not Resolved]
  - Platelet count decreased [Recovered/Resolved]
  - Neutropenia [Recovered/Resolved]
  - Seminoma [Not Recovered/Not Resolved]
  - Platelet count increased [Recovered/Resolved]
  - Testicular germ cell cancer metastatic [Not Recovered/Not Resolved]
  - Thrombocytopenia [Recovered/Resolved]

NARRATIVE: CASE EVENT DATE: 20170620
